FAERS Safety Report 7435885-8 (Version None)
Quarter: 2011Q2

REPORT INFORMATION
  Report Type: 
  Country: None (occurrence: None)
  Receive Date: 20110418
  Receipt Date: 20110331
  Transmission Date: 20111010
  Serious: Yes (Hospitalization, Other)
  Sender: FDA-Public Use
  Company Number: ACO_23119_2011

PATIENT
  Age: 43 Year
  Sex: Female

DRUGS (10)
  1. TYSABRI [Concomitant]
  2. IBUPROFEN (ADVIL) [Concomitant]
  3. MULTIVITAMIN (VITAMIN NOS) [Concomitant]
  4. ASCORBIC ACID [Concomitant]
  5. VESICARE [Concomitant]
  6. TRAMADOL HCL [Suspect]
     Indication: PRODUCT USED FOR UNKNOWN INDICATION
     Dates: start: 20110101, end: 20110101
  7. FLUOXETINE [Concomitant]
  8. CALCIUM (CALCIUM) [Concomitant]
  9. AMPYRA [Suspect]
     Indication: PRODUCT USED FOR UNKNOWN INDICATION
     Dosage: 10 MG, ORAL
     Route: 048
     Dates: start: 20100301, end: 20110101
  10. VITAMIN D [Concomitant]

REACTIONS (19)
  - STATUS EPILEPTICUS [None]
  - HEADACHE [None]
  - ISCHAEMIA [None]
  - HYPOTENSION [None]
  - HYPERVENTILATION [None]
  - INFECTION [None]
  - TACHYCARDIA [None]
  - URINARY RETENTION [None]
  - CEREBROVASCULAR ACCIDENT [None]
  - WHITE BLOOD CELL COUNT INCREASED [None]
  - CONVULSION [None]
  - DEPRESSION [None]
  - LEUKOCYTOSIS [None]
  - ELECTROCARDIOGRAM T WAVE INVERSION [None]
  - MULTIPLE SCLEROSIS [None]
  - SYNCOPE [None]
  - URINARY TRACT INFECTION [None]
  - GAIT DISTURBANCE [None]
  - DISEASE PROGRESSION [None]
